FAERS Safety Report 16966986 (Version 1)
Quarter: 2019Q4

REPORT INFORMATION
  Report Type: Spontaneous
  Country: US (occurrence: US)
  Receive Date: 20191028
  Receipt Date: 20191028
  Transmission Date: 20200122
  Serious: No
  Sender: FDA-Public Use
  Company Number: US-SA-2019SA293018

PATIENT
  Sex: Male

DRUGS (3)
  1. JEVTANA [Suspect]
     Active Substance: CABAZITAXEL
     Dosage: UNK UNK, QCY
     Route: 065
  2. JEVTANA [Suspect]
     Active Substance: CABAZITAXEL
     Dosage: UNK UNK, QCY
     Route: 065
  3. JEVTANA [Suspect]
     Active Substance: CABAZITAXEL
     Dosage: UNK UNK, QCY
     Route: 065

REACTIONS (2)
  - Swollen tongue [Unknown]
  - Speech disorder [Unknown]
